FAERS Safety Report 20402046 (Version 2)
Quarter: 2022Q1

REPORT INFORMATION
  Report Type: Spontaneous
  Country: US (occurrence: US)
  Receive Date: 20220131
  Receipt Date: 20220201
  Transmission Date: 20220423
  Serious: No
  Sender: FDA-Public Use
  Company Number: US-ABBVIE-21K-163-4142812-00

PATIENT
  Age: 67 Year
  Sex: Male
  Weight: 69.916 kg

DRUGS (11)
  1. HUMIRA [Suspect]
     Active Substance: ADALIMUMAB
     Indication: Crohn^s disease
     Route: 058
     Dates: start: 202104
  2. CITALOPRAM [Concomitant]
     Active Substance: CITALOPRAM HYDROBROMIDE
     Indication: Depression
  3. DIAZEPAM [Concomitant]
     Active Substance: DIAZEPAM
     Indication: Muscle spasms
  4. DIAZEPAM [Concomitant]
     Active Substance: DIAZEPAM
     Indication: Ehlers-Danlos syndrome
  5. MODAFINIL [Concomitant]
     Active Substance: MODAFINIL
     Indication: Fatigue
  6. VITAMIN D3 [Concomitant]
     Active Substance: CHOLECALCIFEROL
     Indication: Supplementation therapy
  7. VITAMINS [Concomitant]
     Active Substance: VITAMINS
     Indication: Supplementation therapy
  8. PFIZER-BIONTECH COVID-19 VACCINE [Concomitant]
     Active Substance: TOZINAMERAN
     Indication: COVID-19 immunisation
     Dosage: 1ST DOSE
     Route: 030
     Dates: start: 20210108, end: 20210108
  9. PFIZER-BIONTECH COVID-19 VACCINE [Concomitant]
     Active Substance: TOZINAMERAN
     Dosage: 2ND DOSE
     Route: 030
     Dates: start: 20210129, end: 20210129
  10. PFIZER-BIONTECH COVID-19 VACCINE [Concomitant]
     Active Substance: TOZINAMERAN
     Dosage: BOOSTER DOSE
     Route: 030
     Dates: start: 20210814, end: 20210814
  11. HAEMOPHILUS INFLUENZAE TYPE B VACCINE CONJUGATED [Concomitant]
     Indication: Product used for unknown indication

REACTIONS (7)
  - Diarrhoea [Not Recovered/Not Resolved]
  - Drug ineffective [Not Recovered/Not Resolved]
  - Sinusitis [Recovered/Resolved]
  - Abdominal pain upper [Not Recovered/Not Resolved]
  - Nasopharyngitis [Not Recovered/Not Resolved]
  - Drug level decreased [Not Recovered/Not Resolved]
  - Drug ineffective [Unknown]

NARRATIVE: CASE EVENT DATE: 20210901
